FAERS Safety Report 14319610 (Version 3)
Quarter: 2018Q1

REPORT INFORMATION
  Report Type: Report from Study
  Country: US (occurrence: BR)
  Receive Date: 20171222
  Receipt Date: 20180130
  Transmission Date: 20180509
  Serious: Yes (Other)
  Sender: FDA-Public Use
  Company Number: US-SUNOVION-2017SUN005435

PATIENT
  Sex: Female
  Weight: 58 kg

DRUGS (9)
  1. INSULIN [Concomitant]
     Active Substance: INSULIN NOS
  2. INDACATEROL AND GLYCOPYRROLATE [Suspect]
     Active Substance: GLYCOPYRROLATE\INDACATEROL MALEATE
     Indication: ASTHMA
     Dosage: UNK, QD
     Route: 055
     Dates: start: 201711
  3. MESALAZINA [Concomitant]
     Active Substance: MESALAMINE
     Dosage: 500 UNK, UNK
  4. ALENIA [Concomitant]
     Active Substance: BUDESONIDE\FORMOTEROL FUMARATE
  5. HYDROCHLOROTHIAZIDE. [Concomitant]
     Active Substance: HYDROCHLOROTHIAZIDE
     Dosage: 25 MG, UNK
  6. METFORMIN [Concomitant]
     Active Substance: METFORMIN HYDROCHLORIDE
  7. ASTRO [Concomitant]
     Dosage: UNK
  8. ENSURE [Concomitant]
     Active Substance: AMINO ACIDS\DEXTROSE\ELECTROLYTES NOS\SOYBEAN OIL\VITAMINS
  9. LOSARTAN. [Concomitant]
     Active Substance: LOSARTAN
     Dosage: 50 MG, UNK

REACTIONS (12)
  - Malaise [Unknown]
  - Rhinorrhoea [Recovering/Resolving]
  - Diabetes mellitus [Unknown]
  - Depression [Unknown]
  - Dyspnoea [Not Recovered/Not Resolved]
  - Weight decreased [Recovering/Resolving]
  - Product use in unapproved indication [Unknown]
  - Nervousness [Recovering/Resolving]
  - Breath sounds abnormal [Unknown]
  - Foaming at mouth [Not Recovered/Not Resolved]
  - Cough [Recovering/Resolving]
  - Bronchitis [Recovering/Resolving]
